FAERS Safety Report 7791802-2 (Version None)
Quarter: 2011Q4

REPORT INFORMATION
  Report Type: 
  Country: None (occurrence: None)
  Receive Date: 20111003
  Receipt Date: 20110926
  Transmission Date: 20120403
  Serious: No
  Sender: FDA-Public Use
  Company Number: US-PFIZER INC-2011229870

PATIENT
  Sex: Male

DRUGS (1)
  1. XALKORI [Suspect]
     Dosage: 250 MG, UNK
     Dates: start: 20110901

REACTIONS (5)
  - FATIGUE [None]
  - INCREASED APPETITE [None]
  - TREMOR [None]
  - DIARRHOEA [None]
  - WEIGHT INCREASED [None]
